FAERS Safety Report 13271687 (Version 2)
Quarter: 2019Q1

REPORT INFORMATION
  Report Type: Spontaneous
  Country: CA (occurrence: CA)
  Receive Date: 20170227
  Receipt Date: 20190321
  Transmission Date: 20190417
  Serious: Yes (Other)
  Sender: FDA-Public Use
  Company Number: CA-ROCHE-1897975

PATIENT
  Age: 50 Year
  Sex: Male

DRUGS (5)
  1. ACCUTANE [Suspect]
     Active Substance: ISOTRETINOIN
     Indication: ERYTHEMA
     Route: 065
  2. XOLAIR [Suspect]
     Active Substance: OMALIZUMAB
     Route: 058
  3. ACCUTANE [Suspect]
     Active Substance: ISOTRETINOIN
     Indication: ACNE
     Route: 065
  4. XOLAIR [Suspect]
     Active Substance: OMALIZUMAB
     Indication: ASTHMA
     Route: 058
  5. ACCUTANE [Suspect]
     Active Substance: ISOTRETINOIN
     Indication: ROSACEA
     Route: 065

REACTIONS (11)
  - Rash pustular [Unknown]
  - Melanocytic naevus [Unknown]
  - Urticaria [Unknown]
  - Dry skin [Unknown]
  - Nasal polyps [Unknown]
  - Rosacea [Unknown]
  - Erythema [Unknown]
  - Acne [Not Recovered/Not Resolved]
  - Dermoid cyst [Unknown]
  - Papule [Unknown]
  - Skin exfoliation [Unknown]
